FAERS Safety Report 5845986-3 (Version None)
Quarter: 2008Q3

REPORT INFORMATION
  Report Type: 
  Country: None (occurrence: None)
  Receive Date: 20080814
  Receipt Date: 20080806
  Transmission Date: 20090109
  Serious: Yes (Hospitalization)
  Sender: FDA-Public Use
  Company Number: AU-PFIZER INC-2008051078

PATIENT
  Sex: Male
  Weight: 72 kg

DRUGS (19)
  1. MARAVIROC [Suspect]
     Indication: HIV INFECTION
     Route: 048
  2. COMBIVIR [Concomitant]
     Route: 048
  3. TENOFOVIR [Concomitant]
     Route: 048
  4. EFAVIRENZ [Concomitant]
     Route: 048
  5. ATAZANAVIR SULFATE [Concomitant]
     Route: 048
  6. FISH OIL [Concomitant]
     Route: 048
  7. PARACETAMOL [Concomitant]
     Route: 048
  8. VALACYCLOVIR HCL [Concomitant]
     Route: 048
  9. LATANOPROST [Concomitant]
  10. METOCLOPRAMIDE [Concomitant]
     Route: 048
  11. EFUDEX [Concomitant]
     Route: 061
  12. CELESTONE TAB [Concomitant]
     Route: 061
  13. OXAZEPAM [Concomitant]
     Route: 048
  14. RANITIDINE [Concomitant]
     Route: 048
  15. ENDONE [Concomitant]
     Route: 048
  16. OXYCONTIN [Concomitant]
     Dosage: DAILY DOSE:10MG
  17. OXYCODONE HCL [Concomitant]
  18. IBUPROFEN [Concomitant]
  19. ENOXAPARIN SODIUM [Concomitant]

REACTIONS (1)
  - SQUAMOUS CELL CARCINOMA [None]
